FAERS Safety Report 15708576 (Version 1)
Quarter: 2018Q4

REPORT INFORMATION
  Report Type: Spontaneous
  Country: US (occurrence: US)
  Receive Date: 20181128
  Receipt Date: 20181128
  Transmission Date: 20190205
  Serious: No
  Sender: FDA-Public Use
  Company Number: None

PATIENT
  Age: 47 Year
  Sex: Male

DRUGS (1)
  1. COSENTYX [Suspect]
     Active Substance: SECUKINUMAB
     Dates: start: 201708

REACTIONS (4)
  - Memory impairment [None]
  - Condition aggravated [None]
  - Product distribution issue [None]
  - Product dose omission [None]

NARRATIVE: CASE EVENT DATE: 20181102
